FAERS Safety Report 6644938-3 (Version None)
Quarter: 2010Q1

REPORT INFORMATION
  Report Type: 
  Country: None (occurrence: None)
  Receive Date: 20100317
  Receipt Date: 20100310
  Transmission Date: 20100710
  Serious: Yes (Hospitalization)
  Sender: FDA-Public Use
  Company Number: 2008US002717

PATIENT
  Age: 25 Year
  Sex: Female

DRUGS (5)
  1. ALEFACEPT (ALEFACEPT) INJECTION [Suspect]
     Indication: RENAL TRANSPLANT
     Dosage: 7.5 MG, UNKNOWN/D, IV NOS
     Route: 042
     Dates: start: 20080904, end: 20080909
  2. PROGRAF [Suspect]
     Indication: RENAL TRANSPLANT
     Dosage: ORAL
     Route: 048
     Dates: start: 20080905, end: 20080914
  3. CELLCEPT [Concomitant]
  4. METHYLPREDNISOLONE (METHYLPREDNISOLONE SODIUM SUCCINATE) [Concomitant]
  5. IMMUNE GLOBULIN (HUMAN) [Concomitant]

REACTIONS (11)
  - CARDIAC DISORDER [None]
  - COMPLICATIONS OF TRANSPLANTED KIDNEY [None]
  - FLUID OVERLOAD [None]
  - FRACTURE [None]
  - HAEMODIALYSIS [None]
  - KIDNEY TRANSPLANT REJECTION [None]
  - NEPHRECTOMY [None]
  - PULMONARY OEDEMA [None]
  - RENAL HAEMORRHAGE [None]
  - RENAL VEIN THROMBOSIS [None]
  - RETROPERITONEAL HAEMATOMA [None]
